FAERS Safety Report 4806406-0 (Version None)
Quarter: 2005Q4

REPORT INFORMATION
  Report Type: 
  Country: None (occurrence: None)
  Receive Date: 20051021
  Receipt Date: 20050926
  Transmission Date: 20060501
  Serious: Yes (Other)
  Sender: FDA-Public Use
  Company Number: PHEH2005US10716

PATIENT
  Age: 51 Year
  Sex: Male
  Weight: 54 kg

DRUGS (12)
  1. TEGRETOL [Suspect]
     Indication: CONVULSION
     Dosage: 300 MG, QID
     Route: 048
     Dates: start: 19950101, end: 20050801
  2. TEGRETOL [Suspect]
     Dosage: DECREASING DOSE
     Route: 048
     Dates: start: 20050801, end: 20050920
  3. LANTUS [Concomitant]
     Indication: DIABETES MELLITUS INSULIN-DEPENDENT
     Dosage: 12-14 UNITS/DAY
     Route: 058
     Dates: start: 20040101
  4. PHENOBARBITAL TAB [Concomitant]
     Indication: CONVULSION
     Dosage: 1500 MG/DAY
     Route: 048
  5. NEURONTIN [Concomitant]
     Indication: NEUROPATHY
     Route: 048
     Dates: start: 20040101
  6. TOPAMAX [Concomitant]
     Indication: CONVULSION
     Route: 048
  7. TRILEPTAL [Suspect]
     Indication: CONVULSION
     Dosage: 7 5 MG QD INCREASED GRADUALLY
     Route: 048
     Dates: start: 20050815
  8. TRILEPTAL [Suspect]
     Dosage: 300 MG IN AM, 600 MG HS
     Route: 048
  9. NOVOLOG [Concomitant]
     Indication: DIABETES MELLITUS INSULIN-DEPENDENT
     Dosage: SLIDING SCALE
     Route: 058
     Dates: start: 20020101
  10. LASIX [Concomitant]
     Dosage: 40 MG/DAY
  11. MONOPRIL [Concomitant]
     Dosage: 5 MG/DAY
  12. CRESTOR [Concomitant]

REACTIONS (10)
  - ANGER [None]
  - ANXIETY [None]
  - BLOOD GLUCOSE INCREASED [None]
  - CONVULSION [None]
  - DELUSIONAL PERCEPTION [None]
  - DEPRESSION [None]
  - HALLUCINATIONS, MIXED [None]
  - PARANOIA [None]
  - PSYCHOMOTOR HYPERACTIVITY [None]
  - WEIGHT DECREASED [None]
